FAERS Safety Report 10549064 (Version 2)
Quarter: 2014Q4

REPORT INFORMATION
  Report Type: Spontaneous
  Country: US (occurrence: US)
  Receive Date: 20141028
  Receipt Date: 20141117
  Transmission Date: 20150529
  Serious: Yes (Hospitalization)
  Sender: FDA-Public Use
  Company Number: US-BAYER-2014-157924

PATIENT
  Age: 26 Year
  Sex: Female
  Weight: 53.52 kg

DRUGS (2)
  1. MIRENA [Suspect]
     Active Substance: LEVONORGESTREL
     Indication: MENORRHAGIA
     Dosage: 20 MCG/24HR, CONT
     Route: 015
     Dates: start: 20090526, end: 20100310
  2. MIRENA [Suspect]
     Active Substance: LEVONORGESTREL
     Indication: CONTRACEPTION

REACTIONS (12)
  - Haemorrhage [None]
  - Pelvic discomfort [None]
  - Pelvic pain [None]
  - Injury [None]
  - Depression [None]
  - Anxiety [None]
  - Uterine perforation [None]
  - Emotional distress [None]
  - Procedural pain [Not Recovered/Not Resolved]
  - Device issue [None]
  - Post procedural discomfort [Not Recovered/Not Resolved]
  - Mental disorder [None]

NARRATIVE: CASE EVENT DATE: 20090526
